FAERS Safety Report 21419695 (Version 5)
Quarter: 2023Q2

REPORT INFORMATION
  Report Type: Report from Study
  Country: US (occurrence: US)
  Receive Date: 20221006
  Receipt Date: 20230609
  Transmission Date: 20230721
  Serious: Yes (Death, Hospitalization)
  Sender: FDA-Public Use
  Company Number: US-ACADIA PHARMACEUTICALS INC.-ACA-2022-PIM-003303

PATIENT
  Age: 82 Year
  Sex: Female

DRUGS (2)
  1. NUPLAZID [Suspect]
     Active Substance: PIMAVANSERIN TARTRATE
     Indication: Parkinson^s disease psychosis
     Dosage: 34 MILLIGRAM, QD
     Route: 048
     Dates: start: 20220712
  2. NUPLAZID [Suspect]
     Active Substance: PIMAVANSERIN TARTRATE
     Indication: Parkinson^s disease

REACTIONS (7)
  - Post procedural complication [Fatal]
  - COVID-19 [Fatal]
  - Dehydration [Recovered/Resolved]
  - Pain in extremity [Unknown]
  - Device breakage [Unknown]
  - Osteoporosis [Unknown]
  - Fall [Unknown]

NARRATIVE: CASE EVENT DATE: 20220920
